FAERS Safety Report 4917047-9 (Version None)
Quarter: 2006Q1

REPORT INFORMATION
  Report Type: 
  Country: None (occurrence: None)
  Receive Date: 20060221
  Receipt Date: 20060209
  Transmission Date: 20060701
  Serious: Yes (Hospitalization, Other)
  Sender: FDA-Public Use
  Company Number: US-JNJFOC-20060102468

PATIENT

DRUGS (12)
  1. REOPRO [Suspect]
     Indication: RENAL ARTERY STENOSIS
     Route: 042
  2. NONSTEROIDAL  ANTI-INFLAMMATORY DRUG [Suspect]
     Indication: DRUG USE FOR UNKNOWN INDICATION
  3. CLONIDINE [Concomitant]
  4. NIFEDIPINE [Concomitant]
  5. PROTONIX [Concomitant]
  6. CARAFATE [Concomitant]
  7. PLAVIX [Concomitant]
  8. TOPROL [Concomitant]
  9. MUCOMYST [Concomitant]
  10. ZETIA [Concomitant]
  11. ZOCOR [Concomitant]
  12. CALCIUM CARBONATE [Concomitant]

REACTIONS (3)
  - BLOOD CREATININE INCREASED [None]
  - GASTROINTESTINAL HAEMORRHAGE [None]
  - GASTROINTESTINAL ULCER [None]
